FAERS Safety Report 6817945-5 (Version None)
Quarter: 2010Q3

REPORT INFORMATION
  Report Type: 
  Country: None (occurrence: None)
  Receive Date: 20100706
  Receipt Date: 20100625
  Transmission Date: 20110219
  Serious: Yes (Hospitalization, Other)
  Sender: FDA-Public Use
  Company Number: VE-BAXTER-2010BH016968

PATIENT
  Sex: Female

DRUGS (1)
  1. DIANEAL [Suspect]
     Indication: PERITONEAL DIALYSIS
     Route: 033
     Dates: start: 20100618, end: 20100601

REACTIONS (4)
  - DIARRHOEA [None]
  - EXPIRED DRUG ADMINISTERED [None]
  - MALAISE [None]
  - PERITONITIS [None]
